FAERS Safety Report 9786449 (Version 1)
Quarter: 2013Q4

REPORT INFORMATION
  Report Type: Spontaneous
  Country: US (occurrence: US)
  Receive Date: 20131227
  Receipt Date: 20131227
  Transmission Date: 20140711
  Serious: No
  Sender: FDA-Public Use
  Company Number: US-009507513-1312USA001049

PATIENT
  Sex: Female

DRUGS (1)
  1. NUVARING [Suspect]
     Dosage: NEW NUVARING IN WEEK OF 11-NOV-2013
     Route: 067
     Dates: start: 2010

REACTIONS (3)
  - Incorrect drug administration duration [Unknown]
  - Device difficult to use [Unknown]
  - Overdose [Unknown]
